FAERS Safety Report 7751633-6 (Version None)
Quarter: 2011Q3

REPORT INFORMATION
  Report Type: 
  Country: None (occurrence: None)
  Receive Date: 20110914
  Receipt Date: 20110913
  Transmission Date: 20111222
  Serious: Yes (Death)
  Sender: FDA-Public Use
  Company Number: CA-GILEAD-2011-0043857

PATIENT
  Age: 19 Year
  Sex: Female

DRUGS (2)
  1. CAYSTON [Suspect]
     Indication: CYSTIC FIBROSIS
     Dates: start: 20110701
  2. COLISTIN [Concomitant]

REACTIONS (1)
  - DEATH [None]
